FAERS Safety Report 10262522 (Version 2)
Quarter: 2015Q1

REPORT INFORMATION
  Report Type: Spontaneous
  Country: US (occurrence: US)
  Receive Date: 20140626
  Receipt Date: 20150107
  Transmission Date: 20150720
  Serious: Yes (Life-Threatening, Other)
  Sender: FDA-Public Use
  Company Number: PHEH2014US012773

PATIENT
  Age: 75 Year
  Sex: Female

DRUGS (1)
  1. RECLAST [Suspect]
     Active Substance: ZOLEDRONIC ACID
     Indication: OSTEOPOROSIS
     Dosage: 5 MG, UNK
     Route: 042
     Dates: start: 20140606

REACTIONS (16)
  - Blood pressure systolic increased [Unknown]
  - Blood pressure decreased [Unknown]
  - Renal pain [Unknown]
  - Chills [Recovered/Resolved]
  - Back pain [Unknown]
  - Neck pain [Unknown]
  - Tremor [Unknown]
  - Influenza like illness [Unknown]
  - Body temperature increased [Unknown]
  - Nausea [Unknown]
  - Heart rate irregular [Unknown]
  - Feeling abnormal [Unknown]
  - Asthenia [Recovered/Resolved]
  - Headache [Recovered/Resolved]
  - Chest pain [Recovered/Resolved]
  - Musculoskeletal chest pain [Unknown]

NARRATIVE: CASE EVENT DATE: 20140606
